FAERS Safety Report 8617870 (Version 4)
Quarter: 2014Q1

REPORT INFORMATION
  Report Type: Spontaneous
  Country: US (occurrence: US)
  Receive Date: 20120615
  Receipt Date: 20140320
  Transmission Date: 20141002
  Serious: Yes (Death, Hospitalization, Other)
  Sender: FDA-Public Use
  Company Number: US-B.I. PHARMACEUTICALS,INC./RIDGEFIELD-2012-BP-13600BP

PATIENT
  Age: 75 Year
  Sex: Male

DRUGS (12)
  1. PRADAXA [Suspect]
     Indication: ANTICOAGULANT THERAPY
     Dosage: 300 MG
     Route: 065
     Dates: start: 20101207, end: 20110618
  2. GLIPIZIDE [Concomitant]
     Route: 065
  3. POTASSIUM [Concomitant]
     Route: 065
  4. TYLENOL [Concomitant]
     Route: 065
  5. DOXYCYCLINE [Concomitant]
     Route: 065
  6. METFORMIN [Concomitant]
     Route: 065
  7. METOPROLOL [Concomitant]
     Route: 065
  8. TAMSULOSIN [Concomitant]
     Route: 065
  9. BUSPIRON HCL [Concomitant]
     Route: 065
  10. TRIMETHOBENZAMIDE [Concomitant]
     Route: 065
  11. FUROSEMIDE [Concomitant]
     Route: 065
  12. PREDNISONE [Concomitant]
     Route: 065

REACTIONS (6)
  - Gastrointestinal haemorrhage [Fatal]
  - Respiratory failure [Unknown]
  - Renal haemorrhage [Unknown]
  - Epistaxis [Unknown]
  - Gastrointestinal haemorrhage [Unknown]
  - Haemoptysis [Unknown]
